FAERS Safety Report 4775818-6 (Version None)
Quarter: 2005Q3

REPORT INFORMATION
  Report Type: 
  Country: None (occurrence: None)
  Receive Date: 20050914
  Receipt Date: 20050318
  Transmission Date: 20060218
  Serious: Yes (Death)
  Sender: FDA-Public Use
  Company Number: 163-20785-05030521

PATIENT
  Age: 70 Year
  Sex: Male
  Weight: 67.2 kg

DRUGS (4)
  1. THALOMID [Suspect]
     Indication: MYELODYSPLASTIC SYNDROME
     Dosage: 200MG INCREASED BY 50MG QWK AS TOLERATED TO 1000MG, QHS, ORAL
     Route: 048
     Dates: start: 20011208, end: 20011220
  2. BENADRYL [Concomitant]
  3. COMBIVENT [Concomitant]
  4. IRON SUPPLEMENTS (IRON) [Concomitant]

REACTIONS (2)
  - DEATH [None]
  - MYOCARDIAL INFARCTION [None]
